FAERS Safety Report 5773445-5 (Version None)
Quarter: 2008Q2

REPORT INFORMATION
  Report Type: 
  Country: None (occurrence: None)
  Receive Date: 20080616
  Receipt Date: 20080610
  Transmission Date: 20081010
  Serious: Yes (Hospitalization)
  Sender: FDA-Public Use
  Company Number: US-ELI_LILLY_AND_COMPANY-US200806002501

PATIENT
  Sex: Female
  Weight: 50.794 kg

DRUGS (6)
  1. DULOXETINE HYDROCHLORIDE [Suspect]
     Indication: MAJOR DEPRESSION
     Dosage: UNK MG, DAILY (1/D)
     Route: 048
     Dates: start: 20080115
  2. TOPAMAX [Concomitant]
     Indication: MIGRAINE
     Dates: start: 20070501
  3. IMITREX [Concomitant]
     Indication: MIGRAINE
     Dates: start: 20080424, end: 20080427
  4. FROVA [Concomitant]
     Indication: MIGRAINE
     Dates: start: 20080506, end: 20080508
  5. PREDNISONE TAB [Concomitant]
     Indication: MIGRAINE
     Dates: start: 20080504, end: 20080509
  6. INDERAL [Concomitant]
     Indication: MIGRAINE
     Dates: start: 20080510

REACTIONS (1)
  - STATUS MIGRAINOSUS [None]
